FAERS Safety Report 7215519-8 (Version None)
Quarter: 2011Q1

REPORT INFORMATION
  Report Type: 
  Country: None (occurrence: None)
  Receive Date: 20110107
  Receipt Date: 20110103
  Transmission Date: 20110831
  Serious: Yes (Other)
  Sender: FDA-Public Use
  Company Number: B0691919A

PATIENT
  Age: 64 Year
  Sex: Female
  Weight: 98.5 kg

DRUGS (14)
  1. AMPICILLIN SODIUM/SULBACTAM SODIUM [Suspect]
     Dates: start: 20101223
  2. ANUSOL [Concomitant]
     Dates: start: 20101011, end: 20101025
  3. AMITRIPTYLINE HYDROCHLORIDE [Concomitant]
     Dates: start: 20100906, end: 20101213
  4. CINCHOCAINE [Concomitant]
     Dates: start: 20101210, end: 20101217
  5. METRONIDAZOLE [Concomitant]
     Dates: start: 20101011, end: 20101025
  6. NASEPTIN [Concomitant]
     Dates: start: 20101118, end: 20101119
  7. DOXYCYCLINE [Concomitant]
     Dates: start: 20101207, end: 20101208
  8. OMEPRAZOLE [Concomitant]
     Dates: start: 20100906
  9. CODEINE PHOSPHATE [Concomitant]
     Dates: start: 20101115, end: 20101116
  10. AMOXICILLIN [Concomitant]
     Dates: start: 20101118, end: 20101119
  11. BENDROFLUMETHIAZIDE [Concomitant]
     Dates: start: 20100906, end: 20101004
  12. BECLOMETHASONE DIPROPIONATE [Concomitant]
     Dates: start: 20100927, end: 20101116
  13. TRIMETHOPRIM [Concomitant]
     Dates: start: 20101220, end: 20101223
  14. DICLOFENAC [Concomitant]
     Dates: start: 20101018, end: 20101025

REACTIONS (1)
  - VOMITING [None]
